FAERS Safety Report 14875484 (Version 1)
Quarter: 2018Q2

REPORT INFORMATION
  Report Type: Report from Study
  Country: NL (occurrence: NL)
  Receive Date: 20180510
  Receipt Date: 20180510
  Transmission Date: 20180711
  Serious: Yes (Hospitalization, Other)
  Sender: FDA-Public Use
  Company Number: NL-GLAXOSMITHKLINE-NL2017159323

PATIENT
  Age: 54 Year
  Sex: Male
  Weight: 121.3 kg

DRUGS (9)
  1. OXAZEPAM. [Suspect]
     Active Substance: OXAZEPAM
  2. BLINDED PROPELLER HEALTH SENSOR DEVICE [Suspect]
     Active Substance: DEVICE
     Indication: CHRONIC OBSTRUCTIVE PULMONARY DISEASE
     Dosage: NO THERAPY RECEIVED
  3. TRANXENE [Suspect]
     Active Substance: CLORAZEPATE DIPOTASSIUM
  4. DICLOFENAC [Suspect]
     Active Substance: DICLOFENAC
  5. NAPROXEN. [Suspect]
     Active Substance: NAPROXEN
  6. QUETIAPINE. [Suspect]
     Active Substance: QUETIAPINE
  7. BLINDED DANIRIXIN [Suspect]
     Active Substance: DANIRIXIN
     Indication: CHRONIC OBSTRUCTIVE PULMONARY DISEASE
     Dosage: NO THERAPY RECEIVED
  8. BLINDED ACTIGRAPH GT9X DEVICE [Suspect]
     Active Substance: DEVICE
     Indication: CHRONIC OBSTRUCTIVE PULMONARY DISEASE
     Dosage: NO THERAPY RECEIVED
  9. BLINDED PLACEBO [Suspect]
     Active Substance: INVESTIGATIONAL PRODUCT
     Indication: CHRONIC OBSTRUCTIVE PULMONARY DISEASE
     Dosage: NO THERAPY RECEIVED

REACTIONS (1)
  - Suicide attempt [Recovered/Resolved]

NARRATIVE: CASE EVENT DATE: 20171011
